FAERS Safety Report 23567213 (Version 3)
Quarter: 2024Q1

REPORT INFORMATION
  Report Type: Spontaneous
  Country: US (occurrence: US)
  Receive Date: 20240226
  Receipt Date: 20240315
  Transmission Date: 20240410
  Serious: Yes (Other)
  Sender: FDA-Public Use
  Company Number: US-PFIZER INC-202400049531

PATIENT
  Age: 67 Year
  Sex: Female

DRUGS (1)
  1. XELJANZ [Suspect]
     Active Substance: TOFACITINIB CITRATE
     Indication: Rheumatoid arthritis
     Dosage: 10 MG, 2X/DAY
     Route: 048

REACTIONS (11)
  - Left ventricular failure [Unknown]
  - Cardiomyopathy [Unknown]
  - Ventriculo-peritoneal shunt [Unknown]
  - Chronic left ventricular failure [Unknown]
  - Cerebral ventricle dilatation [Unknown]
  - Chronic obstructive pulmonary disease [Unknown]
  - Hypertension [Unknown]
  - Hyperlipidaemia [Unknown]
  - Anaemia [Unknown]
  - Psoriasis [Unknown]
  - Off label use [Unknown]
